FAERS Safety Report 8242935-8 (Version None)
Quarter: 2012Q1

REPORT INFORMATION
  Report Type: 
  Country: None (occurrence: None)
  Receive Date: 20120329
  Receipt Date: 20120329
  Transmission Date: 20120608
  Serious: Yes (Other)
  Sender: FDA-Public Use
  Company Number: None

PATIENT
  Age: 16 Year
  Sex: Male
  Weight: 72.574 kg

DRUGS (1)
  1. DOXYCYCLINE HYCLATE [Suspect]
     Indication: ACNE
     Route: 048
     Dates: start: 20111101, end: 20120326

REACTIONS (7)
  - HAEMATOCHEZIA [None]
  - ABDOMINAL PAIN UPPER [None]
  - PAIN [None]
  - MOOD SWINGS [None]
  - NECK PAIN [None]
  - HYPERHIDROSIS [None]
  - ARTHRALGIA [None]
